FAERS Safety Report 22317609 (Version 2)
Quarter: 2023Q2

REPORT INFORMATION
  Report Type: Spontaneous
  Country: US (occurrence: US)
  Receive Date: 20230515
  Receipt Date: 20230518
  Transmission Date: 20230722
  Serious: No
  Sender: FDA-Public Use
  Company Number: US-AMGEN-USASP2023081874

PATIENT
  Age: 64 Year
  Sex: Male

DRUGS (3)
  1. REPATHA [Suspect]
     Active Substance: EVOLOCUMAB
     Indication: Blood cholesterol increased
     Dosage: 420 MILLIGRAM, QMO
     Route: 065
     Dates: start: 202204, end: 20230310
  2. LOVASTATIN [Concomitant]
     Active Substance: LOVASTATIN
     Indication: Blood pressure measurement
     Dosage: 25 MILLIGRAM
  3. FINASTERIDE [Concomitant]
     Active Substance: FINASTERIDE
     Indication: Alopecia
     Dosage: 1 MILLIGRAM

REACTIONS (1)
  - Pruritus [Unknown]

NARRATIVE: CASE EVENT DATE: 20230301
